FAERS Safety Report 5501466-6 (Version None)
Quarter: 2007Q4

REPORT INFORMATION
  Report Type: 
  Country: None (occurrence: None)
  Receive Date: 20071023
  Receipt Date: 20060919
  Transmission Date: 20080405
  Serious: Yes (Hospitalization, Other)
  Sender: FDA-Public Use
  Company Number: 30730

PATIENT
  Age: 78 Year
  Sex: Male

DRUGS (11)
  1. CYTARABINE [Suspect]
     Indication: ACUTE MYELOID LEUKAEMIA
     Dosage: 20M/M2/SQ/BIDX 10 DAYS
     Dates: start: 20060802, end: 20060908
  2. CHLORPHENIRAMINE/ACETAMINOPHEN (CORICIDIN) [Concomitant]
  3. VITAMIN B-12 1000 MCG ORALLY DAILY [Concomitant]
  4. FINASTERIDE 5 MG ORALLY [Concomitant]
  5. ATENOLOL 50MG ORALLY DAILY [Concomitant]
  6. PANTOPRAZOLE 40MG ORALLY DAILY [Concomitant]
  7. POTASSIUM CHLORIDE 10MEQ ORALLY TWICE DAILY [Concomitant]
  8. ALLOPURINOL 300MG ORALLY TWICE DAILY [Concomitant]
  9. PRENISOLONE ACETATE 1% EYE DROPS TWICE WEEKLY [Concomitant]
  10. KETOROLAC TROMETHAMINE 0.5% EYE DROPS TWICE WEEKLY [Concomitant]
  11. MULTIVITAMINS (CENTRUM SILVER) ONE TABLET ORALLY DAILY [Concomitant]

REACTIONS (3)
  - INFECTION [None]
  - NEUTROPENIA [None]
  - THROMBOCYTOPENIA [None]
